FAERS Safety Report 5811006-X (Version None)
Quarter: 2008Q3

REPORT INFORMATION
  Report Type: 
  Country: None (occurrence: None)
  Receive Date: 20080716
  Receipt Date: 20080714
  Transmission Date: 20090109
  Serious: Yes (Hospitalization, Disabling)
  Sender: FDA-Public Use
  Company Number: DE-JNJFOC-20080703014

PATIENT
  Age: 39 Year
  Sex: Female

DRUGS (3)
  1. TAVANIC [Suspect]
     Indication: URINARY TRACT INFECTION
     Route: 048
  2. TAVANIC [Suspect]
     Indication: PYELONEPHRITIS
     Route: 048
  3. HERBAL MEDICINE [Concomitant]
     Indication: URINARY TRACT INFECTION
     Route: 048

REACTIONS (5)
  - ABDOMINAL PAIN [None]
  - DIARRHOEA [None]
  - FLATULENCE [None]
  - NAUSEA [None]
  - RENAL PAIN [None]
